FAERS Safety Report 10246265 (Version 1)
Quarter: 2014Q2

REPORT INFORMATION
  Report Type: Spontaneous
  Country: US (occurrence: None)
  Receive Date: 20140617
  Receipt Date: 20140617
  Transmission Date: 20141212
  Serious: Yes (Disabling)
  Sender: FDA-Public Use
  Company Number: None

PATIENT
  Age: 26 Year
  Sex: Female
  Weight: 81.65 kg

DRUGS (1)
  1. LEVOFLOXACIN [Suspect]
     Indication: SINUSITIS
     Route: 048
     Dates: start: 20140226, end: 20140303

REACTIONS (8)
  - Myalgia [None]
  - Arthralgia [None]
  - Lethargy [None]
  - Insomnia [None]
  - Back pain [None]
  - Pain in extremity [None]
  - Tendon pain [None]
  - Pain [None]
